FAERS Safety Report 5451651-7 (Version None)
Quarter: 2007Q3

REPORT INFORMATION
  Report Type: 
  Country: None (occurrence: None)
  Receive Date: 20070913
  Receipt Date: 20070910
  Transmission Date: 20080115
  Serious: Yes (Other)
  Sender: FDA-Public Use
  Company Number: US-PFIZER INC-2007075468

PATIENT
  Sex: Male
  Weight: 90.7 kg

DRUGS (3)
  1. CELEBREX [Suspect]
     Indication: ARTHRITIS
  2. FELDENE [Suspect]
     Indication: ARTHRITIS
  3. ALL OTHER THERAPEUTIC PRODUCTS [Concomitant]

REACTIONS (4)
  - HYPERSENSITIVITY [None]
  - PALPITATIONS [None]
  - PRURITUS [None]
  - THROAT TIGHTNESS [None]
